FAERS Safety Report 14950584 (Version 3)
Quarter: 2018Q3

REPORT INFORMATION
  Report Type: Report from Study
  Country: US (occurrence: US)
  Receive Date: 20180530
  Receipt Date: 20180806
  Transmission Date: 20181010
  Serious: Yes (Other)
  Sender: FDA-Public Use
  Company Number: US-AMGEN-USASL2018072427

PATIENT
  Sex: Female

DRUGS (2)
  1. ENBREL [Suspect]
     Active Substance: ETANERCEPT
     Indication: RHEUMATOID ARTHRITIS
     Dosage: 50 MG, QWK
     Route: 065
     Dates: start: 201805
  2. ENBREL [Suspect]
     Active Substance: ETANERCEPT
     Dosage: 50 MG, QWK
     Route: 065

REACTIONS (11)
  - Injection site induration [Unknown]
  - Injection site pruritus [Unknown]
  - Injection site inflammation [Unknown]
  - Injection site papule [Unknown]
  - Fear of injection [Unknown]
  - Rheumatoid arthritis [Unknown]
  - Injection site mass [Unknown]
  - Injection site swelling [Unknown]
  - Drug effect incomplete [Unknown]
  - Injection site erythema [Recovering/Resolving]
  - Injection site warmth [Unknown]

NARRATIVE: CASE EVENT DATE: 2018
